FAERS Safety Report 8351168-6 (Version None)
Quarter: 2012Q2

REPORT INFORMATION
  Report Type: 
  Country: None (occurrence: None)
  Receive Date: 20120510
  Receipt Date: 20120507
  Transmission Date: 20120825
  Serious: No
  Sender: FDA-Public Use
  Company Number: US-PFIZER INC-2012111514

PATIENT
  Sex: Male
  Weight: 86.168 kg

DRUGS (3)
  1. LEVOTHYROXINE SODIUM [Suspect]
     Indication: HYPOTHYROIDISM
     Dosage: 50 UG, 1X/DAY
     Route: 048
  2. CENTRUM A-Z [Suspect]
     Indication: VITAMIN SUPPLEMENTATION
     Dosage: TABLET, 1X/DAY
     Route: 048
     Dates: start: 19790101
  3. VITAMIN C [Concomitant]
     Dosage: UNK

REACTIONS (5)
  - HYPOTENSION [None]
  - HEADACHE [None]
  - HEART RATE INCREASED [None]
  - HEART RATE DECREASED [None]
  - HYPERTENSION [None]
